FAERS Safety Report 10529719 (Version 2)
Quarter: 2018Q2

REPORT INFORMATION
  Report Type: Report from Study
  Country: US (occurrence: US)
  Receive Date: 20141021
  Receipt Date: 20180514
  Transmission Date: 20180711
  Serious: Yes (Disabling)
  Sender: FDA-Public Use
  Company Number: US-ROCHE-1476793

PATIENT
  Sex: Male
  Weight: 39 kg

DRUGS (6)
  1. NUTROPIN AQ [Suspect]
     Active Substance: SOMATROPIN
     Route: 058
     Dates: start: 200702
  2. VYVANSE [Concomitant]
     Active Substance: LISDEXAMFETAMINE DIMESYLATE
     Dosage: INCREASED DOSE
     Route: 048
  3. VYVANSE [Concomitant]
     Active Substance: LISDEXAMFETAMINE DIMESYLATE
     Indication: ATTENTION DEFICIT/HYPERACTIVITY DISORDER
     Route: 048
  4. NUTROPIN AQ [Suspect]
     Active Substance: SOMATROPIN
     Dosage: NIGHTLY
     Route: 058
     Dates: start: 200702
  5. NUTROPIN AQ [Suspect]
     Active Substance: SOMATROPIN
     Indication: BODY HEIGHT BELOW NORMAL
     Dosage: NIGHTLY
     Route: 058
     Dates: start: 200702
  6. FOCALIN [Concomitant]
     Active Substance: DEXMETHYLPHENIDATE HYDROCHLORIDE

REACTIONS (10)
  - Abnormal behaviour [Unknown]
  - Intentional self-injury [Unknown]
  - Lip swelling [Unknown]
  - Contusion [Unknown]
  - Growth retardation [Unknown]
  - Upper respiratory tract infection [Unknown]
  - Hallucination [Unknown]
  - Decreased appetite [Recovered/Resolved]
  - Depression [Unknown]
  - Rhinorrhoea [Unknown]
